FAERS Safety Report 9462896 (Version 1)
Quarter: 2013Q3

REPORT INFORMATION
  Report Type: Spontaneous
  Country: None (occurrence: None)
  Receive Date: 20130814
  Receipt Date: 20130814
  Transmission Date: 20140515
  Serious: Yes (Other)
  Sender: FDA-Public Use
  Company Number: 2013P1017320

PATIENT
  Age: 47 Year
  Sex: Female

DRUGS (1)
  1. PROGESTERONE [Suspect]
     Route: 048

REACTIONS (4)
  - Angioedema [None]
  - Laryngeal oedema [None]
  - Erythema [None]
  - Erythema [None]
